FAERS Safety Report 7421909-0 (Version None)
Quarter: 2011Q2

REPORT INFORMATION
  Report Type: 
  Country: None (occurrence: None)
  Receive Date: 20110418
  Receipt Date: 20110406
  Transmission Date: 20111010
  Serious: Yes (Hospitalization)
  Sender: FDA-Public Use
  Company Number: DK-ELI_LILLY_AND_COMPANY-DK201104001483

PATIENT
  Sex: Male

DRUGS (2)
  1. ANTABUSE [Concomitant]
  2. STRATTERA [Suspect]
     Indication: ATTENTION DEFICIT/HYPERACTIVITY DISORDER
     Dosage: 60 MG, QD
     Dates: start: 20090601

REACTIONS (9)
  - PYREXIA [None]
  - CHEST PAIN [None]
  - MUSCULAR WEAKNESS [None]
  - MALAISE [None]
  - SWOLLEN TONGUE [None]
  - VOMITING [None]
  - VIRAL INFECTION [None]
  - LIVEDO RETICULARIS [None]
  - HYPERHIDROSIS [None]
